FAERS Safety Report 10099752 (Version 1)
Quarter: 2014Q2

REPORT INFORMATION
  Report Type: Spontaneous
  Country: US (occurrence: None)
  Receive Date: 20140422
  Receipt Date: 20140422
  Transmission Date: 20141212
  Serious: Yes (Disabling)
  Sender: FDA-Public Use
  Company Number: None

PATIENT
  Age: 52 Year
  Sex: Female
  Weight: 136.08 kg

DRUGS (5)
  1. HYDROCODONE APAP [Suspect]
     Indication: BACK PAIN
     Route: 048
     Dates: start: 201401, end: 201404
  2. HYDROCODONE APAP [Suspect]
     Indication: PAIN IN EXTREMITY
     Route: 048
     Dates: start: 201401, end: 201404
  3. HYDROCODONE APAP [Suspect]
     Indication: INJURY
     Route: 048
     Dates: start: 201401, end: 201404
  4. ADVAIR [Concomitant]
  5. PREVACID [Concomitant]

REACTIONS (2)
  - Nasopharyngitis [None]
  - Respiratory disorder [None]
